FAERS Safety Report 4689492-0 (Version None)
Quarter: 2005Q2

REPORT INFORMATION
  Report Type: 
  Country: None (occurrence: None)
  Receive Date: 20050613
  Receipt Date: 20050613
  Transmission Date: 20051028
  Serious: Yes (Hospitalization)
  Sender: FDA-Public Use
  Company Number: None

PATIENT
  Age: 40 Year
  Sex: Female
  Weight: 52 kg

DRUGS (1)
  1. MARCAINE [Suspect]
     Indication: PAIN MANAGEMENT
     Dosage: IM
     Route: 030
     Dates: start: 20050218

REACTIONS (3)
  - ASTHENIA [None]
  - HYPOAESTHESIA [None]
  - MUSCULAR WEAKNESS [None]
